FAERS Safety Report 7582840-3 (Version None)
Quarter: 2011Q2

REPORT INFORMATION
  Report Type: 
  Country: None (occurrence: None)
  Receive Date: 20110627
  Receipt Date: 20110627
  Transmission Date: 20111010
  Serious: No
  Sender: FDA-Public Use
  Company Number: None

PATIENT
  Age: 51 Year
  Sex: Male
  Weight: 78.0187 kg

DRUGS (1)
  1. LEVITRA [Suspect]
     Indication: ERECTILE DYSFUNCTION
     Dosage: 20MG X 2 1D PO
     Route: 048
     Dates: start: 20110605, end: 20110620

REACTIONS (18)
  - TINNITUS [None]
  - CONDITION AGGRAVATED [None]
  - DYSARTHRIA [None]
  - HYPERACUSIS [None]
  - ASTHENOPIA [None]
  - DEAFNESS UNILATERAL [None]
  - HEADACHE [None]
  - MENTAL DISORDER [None]
  - DISCOMFORT [None]
  - MUSCULOSKELETAL DISCOMFORT [None]
  - EYE DISORDER [None]
  - FEELING ABNORMAL [None]
  - VISION BLURRED [None]
  - MENTAL IMPAIRMENT [None]
  - COGNITIVE DISORDER [None]
  - EYE MOVEMENT DISORDER [None]
  - HYPOACUSIS [None]
  - MYALGIA [None]
